APPROVED DRUG PRODUCT: LISDEXAMFETAMINE DIMESYLATE
Active Ingredient: LISDEXAMFETAMINE DIMESYLATE
Strength: 20MG
Dosage Form/Route: TABLET, CHEWABLE;ORAL
Application: A218306 | Product #002 | TE Code: AB
Applicant: MSN LABORATORIES PRIVATE LTD
Approved: Feb 2, 2024 | RLD: No | RS: No | Type: RX